FAERS Safety Report 6236710-3 (Version None)
Quarter: 2009Q2

REPORT INFORMATION
  Report Type: 
  Country: None (occurrence: None)
  Receive Date: 20090619
  Receipt Date: 20090610
  Transmission Date: 20091009
  Serious: Yes (Other)
  Sender: FDA-Public Use
  Company Number: US-JNJFOC-20090506015

PATIENT
  Sex: Female

DRUGS (2)
  1. TRINESSA [Suspect]
     Indication: CONTRACEPTION
     Route: 048
  2. BALZIVA [Suspect]
     Indication: DRUG USE FOR UNKNOWN INDICATION
     Dosage: 35/400UG OR 0.4/0.035 MG
     Route: 048

REACTIONS (4)
  - MENSTRUATION DELAYED [None]
  - METRORRHAGIA [None]
  - THERAPEUTIC RESPONSE UNEXPECTED [None]
  - VISION BLURRED [None]
